FAERS Safety Report 19911343 (Version 2)
Quarter: 2021Q4

REPORT INFORMATION
  Report Type: Spontaneous
  Country: FR (occurrence: FR)
  Receive Date: 20211004
  Receipt Date: 20211014
  Transmission Date: 20220304
  Serious: Yes (Hospitalization, Other)
  Sender: FDA-Public Use
  Company Number: None

PATIENT
  Age: 77 Year
  Sex: Male

DRUGS (22)
  1. BISOPROLOL [Suspect]
     Active Substance: BISOPROLOL
     Indication: Intentional overdose
     Dosage: 70 MG, QD
     Route: 048
     Dates: start: 20210712, end: 20210712
  2. BISOPROLOL [Suspect]
     Active Substance: BISOPROLOL
     Dosage: 1 DF, QD (MORNING)
     Route: 065
  3. PANTOPRAZOLE [Suspect]
     Active Substance: PANTOPRAZOLE
     Indication: Intentional overdose
     Dosage: 45 MG, QD
     Route: 048
     Dates: start: 20210712, end: 20210712
  4. PANTOPRAZOLE [Suspect]
     Active Substance: PANTOPRAZOLE
     Dosage: 1 DF, QD (MORNING)
     Route: 065
  5. ALFUZOSIN [Suspect]
     Active Substance: ALFUZOSIN
     Indication: Intentional overdose
     Dosage: 17.5 MG, QD
     Route: 048
     Dates: start: 20210712, end: 20210712
  6. ALFUZOSIN [Suspect]
     Active Substance: ALFUZOSIN
     Dosage: 1 TAB 3X /DAY
     Route: 065
  7. MIANSERIN [Suspect]
     Active Substance: MIANSERIN
     Indication: Intentional overdose
     Dosage: 420 MG, QD
     Route: 048
     Dates: start: 20210712, end: 20210712
  8. MIANSERIN [Suspect]
     Active Substance: MIANSERIN
     Dosage: 2 DF (EVENING)
     Route: 065
  9. BROMAZEPAM [Suspect]
     Active Substance: BROMAZEPAM
     Indication: Intentional overdose
     Dosage: 3 MG, QD
     Route: 048
     Dates: start: 20210712, end: 20210712
  10. BROMAZEPAM [Suspect]
     Active Substance: BROMAZEPAM
     Dosage: 1 DF, QD (EVENING)
     Route: 065
  11. PERINDOPRIL [Suspect]
     Active Substance: PERINDOPRIL
     Indication: Product used for unknown indication
     Dosage: 2 MG, QD (MORNING)
     Route: 065
  12. FUROSEMIDE [Suspect]
     Active Substance: FUROSEMIDE
     Indication: Product used for unknown indication
     Dosage: 5 MG, QD (MORNING)
     Route: 065
  13. FUROSEMIDE [Suspect]
     Active Substance: FUROSEMIDE
     Dosage: 0.5 TAB MORNING AND NOON
     Route: 065
  14. ACETAMINOPHEN [Suspect]
     Active Substance: ACETAMINOPHEN
     Indication: Product used for unknown indication
     Route: 065
  15. REPAGLINIDE [Suspect]
     Active Substance: REPAGLINIDE
     Indication: Product used for unknown indication
     Dosage: 1 DF, Q12H
     Route: 065
  16. SPIRONOLACTONE [Concomitant]
     Active Substance: SPIRONOLACTONE
     Indication: Product used for unknown indication
     Dosage: 1 DF, QD (MORNING)
     Route: 065
  17. PREVISCAN [Concomitant]
     Indication: Product used for unknown indication
     Dosage: 3/4 TAB IN THE EVENING
     Route: 065
  18. FINASTERIDE [Concomitant]
     Active Substance: FINASTERIDE
     Indication: Product used for unknown indication
     Dosage: 1 DF, QD (MORNING)
     Route: 065
  19. RISEDRONATE SODIUM [Concomitant]
     Active Substance: RISEDRONATE SODIUM
     Indication: Product used for unknown indication
     Dosage: 1 TAB EVERY 7 DAYS
     Route: 065
  20. FLUINDIONE [Concomitant]
     Active Substance: FLUINDIONE
     Indication: Product used for unknown indication
     Dosage: UNK
     Route: 065
  21. LIRAGLUTIDE [Concomitant]
     Active Substance: LIRAGLUTIDE
     Indication: Product used for unknown indication
     Dosage: 3 DOSES OF 0.6 MG IN THE MORNING
     Route: 065
  22. TOUJEO [Concomitant]
     Active Substance: INSULIN GLARGINE
     Indication: Product used for unknown indication
     Dosage: 300 IU / ML / H ONCE IN THE EVENING
     Route: 065

REACTIONS (8)
  - Pneumonia aspiration [Recovered/Resolved]
  - Acute kidney injury [Recovered/Resolved]
  - Coma [Recovered/Resolved]
  - Bradycardia [Recovered/Resolved]
  - Hypotension [Recovered/Resolved]
  - Poisoning deliberate [Recovered/Resolved]
  - Pseudomonas infection [Unknown]
  - Cardiogenic shock [Unknown]

NARRATIVE: CASE EVENT DATE: 20210712
